FAERS Safety Report 22392841 (Version 1)
Quarter: 2023Q2

REPORT INFORMATION
  Report Type: Spontaneous
  Country: HK (occurrence: HK)
  Receive Date: 20230601
  Receipt Date: 20230601
  Transmission Date: 20230722
  Serious: Yes (Other)
  Sender: FDA-Public Use
  Company Number: HK-SUN PHARMACEUTICAL INDUSTRIES LTD-2023RR-391809

PATIENT
  Age: 65 Year
  Sex: Male

DRUGS (2)
  1. FINASTERIDE [Suspect]
     Active Substance: FINASTERIDE
     Indication: Prostatomegaly
     Dosage: UNK
     Route: 065
  2. ALFUZOSIN [Suspect]
     Active Substance: ALFUZOSIN
     Indication: Prostatomegaly
     Dosage: UNK
     Route: 065

REACTIONS (1)
  - Urinary retention [Unknown]
